FAERS Safety Report 15663863 (Version 1)
Quarter: 2018Q4

REPORT INFORMATION
  Report Type: Spontaneous
  Country: US (occurrence: US)
  Receive Date: 20181128
  Receipt Date: 20181128
  Transmission Date: 20190205
  Serious: No
  Sender: FDA-Public Use
  Company Number: US-AUROBINDO-AUR-APL-2017-45393

PATIENT

DRUGS (1)
  1. LOSARTAN POTASSIUM / HYDROCHLOROTHIAZIDE 100MG +12.5 MG [Suspect]
     Active Substance: HYDROCHLOROTHIAZIDE\LOSARTAN POTASSIUM
     Indication: BLOOD PRESSURE MEASUREMENT
     Dosage: 1 DOSAGE FORM, DAILY
     Route: 065

REACTIONS (1)
  - Drug ineffective [Recovered/Resolved]
